FAERS Safety Report 25095089 (Version 1)
Quarter: 2025Q1

REPORT INFORMATION
  Report Type: Spontaneous
  Country: DE (occurrence: DE)
  Receive Date: 20250319
  Receipt Date: 20250319
  Transmission Date: 20250408
  Serious: Yes (Congenital Anomaly, Other)
  Sender: OTSUKA
  Company Number: DE-EMB-M202307675-1

PATIENT
  Sex: Female
  Weight: 3.35 kg

DRUGS (8)
  1. ABILIFY [Suspect]
     Active Substance: ARIPIPRAZOLE
     Indication: Psychotic disorder
     Dosage: 10 MG, QD
     Route: 064
     Dates: start: 202306, end: 202308
  2. ABILIFY [Suspect]
     Active Substance: ARIPIPRAZOLE
     Dosage: 7.5 MG, QD
     Route: 064
     Dates: start: 202308, end: 202402
  3. ABILIFY [Suspect]
     Active Substance: ARIPIPRAZOLE
     Dosage: 10 MG, QD
     Route: 064
     Dates: start: 202402, end: 202403
  4. ABILIFY [Suspect]
     Active Substance: ARIPIPRAZOLE
     Dosage: 15 MG, QD
     Route: 064
     Dates: start: 202403, end: 202403
  5. ABILIFY [Suspect]
     Active Substance: ARIPIPRAZOLE
     Dosage: 20 MG, QD
     Route: 064
     Dates: start: 202403, end: 202403
  6. OLANZAPINE [Suspect]
     Active Substance: OLANZAPINE
     Indication: Psychotic disorder
     Dosage: 7.5 MG, QD
     Route: 064
     Dates: start: 202306, end: 202309
  7. OLANZAPINE [Suspect]
     Active Substance: OLANZAPINE
     Dosage: 5 MG, QD
     Route: 064
     Dates: start: 202309, end: 202310
  8. OLANZAPINE [Suspect]
     Active Substance: OLANZAPINE
     Dosage: 2.5 MG, QD
     Route: 064
     Dates: start: 202310, end: 202402

REACTIONS (4)
  - Polydactyly [Recovered/Resolved]
  - Patent ductus arteriosus [Recovered/Resolved]
  - Pulmonary valve stenosis [Unknown]
  - Foetal exposure during pregnancy [Unknown]

NARRATIVE: CASE EVENT DATE: 20240401
